FAERS Safety Report 10066850 (Version 1)
Quarter: 2014Q2

REPORT INFORMATION
  Report Type: Spontaneous
  Country: IT (occurrence: IT)
  Receive Date: 20140408
  Receipt Date: 20140408
  Transmission Date: 20141212
  Serious: Yes (Hospitalization)
  Sender: FDA-Public Use
  Company Number: IT-MYLANLABS-2014S1007581

PATIENT
  Age: 66 Year
  Sex: Male

DRUGS (3)
  1. IRINOTECAN HYDROCHLORIDE TRIHYDRATE [Suspect]
     Indication: RECTAL CANCER STAGE IV
     Dosage: 120 MG/M2 CYCLICAL
     Route: 042
     Dates: start: 20131202, end: 20140317
  2. OXALIPLATIN [Suspect]
     Indication: COLON CANCER
     Route: 042
     Dates: start: 20131202, end: 20140303
  3. ERBITUX [Suspect]
     Indication: COLON CANCER
     Dosage: 250 MG/M2 CYCLICAL
     Route: 042
     Dates: start: 20131202, end: 20140324

REACTIONS (1)
  - Atrial fibrillation [Recovered/Resolved]
